FAERS Safety Report 10262015 (Version 6)
Quarter: 2015Q1

REPORT INFORMATION
  Report Type: Spontaneous
  Country: IL (occurrence: IL)
  Receive Date: 20140626
  Receipt Date: 20150225
  Transmission Date: 20150720
  Serious: Yes (Death, Hospitalization)
  Sender: FDA-Public Use
  Company Number: IL-PFIZER INC-2014121135

PATIENT
  Age: 62 Year
  Sex: Male

DRUGS (6)
  1. INLYTA [Suspect]
     Active Substance: AXITINIB
     Indication: RENAL CELL CARCINOMA
     Dosage: ^MOVED FROM DOSE TO DOSE^ 2X/DAY CONTINUOUS
     Route: 048
     Dates: start: 20140417, end: 20140826
  2. CILRIL [Concomitant]
     Dosage: UNK
  3. TARGIN [Concomitant]
     Active Substance: NALOXONE HYDROCHLORIDE\OXYCODONE HYDROCHLORIDE
     Dosage: UNK
  4. PERCOCET [Concomitant]
     Active Substance: ACETAMINOPHEN\OXYCODONE HYDROCHLORIDE
     Dosage: UNK
  5. FENTA [Concomitant]
     Indication: PAIN
     Dosage: UNK
  6. OPTALGIN [Concomitant]
     Active Substance: METAMIZOLE
     Dosage: UNK

REACTIONS (22)
  - Haematemesis [Unknown]
  - Weight decreased [Recovering/Resolving]
  - Haemoglobin decreased [Not Recovered/Not Resolved]
  - Blood pressure increased [Not Recovered/Not Resolved]
  - Feeling abnormal [Not Recovered/Not Resolved]
  - Death [Fatal]
  - Abdominal pain upper [Recovering/Resolving]
  - Pain [Recovering/Resolving]
  - Asthenia [Not Recovered/Not Resolved]
  - Mobility decreased [Not Recovered/Not Resolved]
  - Renal cell carcinoma [Unknown]
  - Dyspnoea [Not Recovered/Not Resolved]
  - Frequent bowel movements [Recovering/Resolving]
  - Chest pain [Not Recovered/Not Resolved]
  - Disease progression [Unknown]
  - Dry mouth [Not Recovered/Not Resolved]
  - Peripheral swelling [Recovering/Resolving]
  - Decreased appetite [Recovering/Resolving]
  - Constipation [Recovered/Resolved]
  - Nausea [Recovered/Resolved]
  - Vomiting [Recovered/Resolved]
  - Dry skin [Not Recovered/Not Resolved]

NARRATIVE: CASE EVENT DATE: 2014
